FAERS Safety Report 14844405 (Version 1)
Quarter: 2018Q2

REPORT INFORMATION
  Report Type: Spontaneous
  Country: US (occurrence: US)
  Receive Date: 20180503
  Receipt Date: 20180503
  Transmission Date: 20180711
  Serious: No
  Sender: FDA-Public Use
  Company Number: US-009507513-1804USA012072

PATIENT
  Age: 33 Year
  Sex: Female

DRUGS (4)
  1. ATAZANAVIR SULFATE. [Suspect]
     Active Substance: ATAZANAVIR SULFATE
     Dosage: 300 DF, UNK; STARTING BEFORE PREGNANCY (-113 WEEKS)
     Route: 048
  2. RALTEGRAVIR POTASSIUM [Suspect]
     Active Substance: RALTEGRAVIR POTASSIUM
     Dosage: 400 DF, UNK; STARTING BEFORE PREGNANCY (-113 WEEKS)
     Route: 048
  3. RITONAVIR. [Suspect]
     Active Substance: RITONAVIR
     Dosage: 100 DF, UNK; STARTING BEFORE PREGNANCY (-113 WEEKS)
     Route: 048
  4. EMTRICITABINE (+) TENOFOVIR DISOPROXIL FUMARATE [Suspect]
     Active Substance: EMTRICITABINE\TENOFOVIR DISOPROXIL
     Dosage: 1 DF, UNK; STARTING BEFORE PREGNANCY (-113 WEEKS)
     Route: 048

REACTIONS (2)
  - Maternal exposure before pregnancy [Recovered/Resolved]
  - Exposure during pregnancy [Recovered/Resolved]
